FAERS Safety Report 5024173-5 (Version None)
Quarter: 2006Q2

REPORT INFORMATION
  Report Type: 
  Country: None (occurrence: None)
  Receive Date: 20060607
  Receipt Date: 20060603
  Transmission Date: 20061013
  Serious: Yes (Death)
  Sender: FDA-Public Use
  Company Number: 222031

PATIENT
  Age: 79 Year
  Sex: Female

DRUGS (5)
  1. ACTIVASE [Suspect]
     Indication: ISCHAEMIC STROKE
     Dosage: 39 MG, SINGLE , INTRAVENOUS
     Route: 042
     Dates: start: 20060127
  2. CARVEDILOL [Concomitant]
  3. DIGITOXIN TAB [Concomitant]
  4. DICLOFENAC SODIUM [Concomitant]
  5. RISEDRONATE (RISEDRONATE SODIUM) [Concomitant]

REACTIONS (4)
  - CARDIAC TAMPONADE [None]
  - CARDIOGENIC SHOCK [None]
  - DEPRESSED LEVEL OF CONSCIOUSNESS [None]
  - PERICARDIAL HAEMORRHAGE [None]
